FAERS Safety Report 4360499-6 (Version None)
Quarter: 2004Q2

REPORT INFORMATION
  Report Type: 
  Country: None (occurrence: None)
  Receive Date: 20040513
  Receipt Date: 20040430
  Transmission Date: 20050107
  Serious: Yes (Death)
  Sender: FDA-Public Use
  Company Number: 206241

PATIENT
  Age: 51 Year
  Sex: Female
  Weight: 112.9 kg

DRUGS (4)
  1. HERCEPTIN (TRASTUZUMAB) PWDR + SOLVENT, INFUSION SOLN, 440MG [Suspect]
     Indication: BREAST CANCER
     Dosage: 452 MG, 1/WEEK, INTRAVENOUS
     Route: 042
     Dates: start: 20040419, end: 20040419
  2. ZOMETA [Concomitant]
  3. NAVELBINE [Concomitant]
  4. BENADRYL [Concomitant]

REACTIONS (15)
  - ASPARTATE AMINOTRANSFERASE INCREASED [None]
  - BLOOD ALKALINE PHOSPHATASE INCREASED [None]
  - BLOOD BILIRUBIN INCREASED [None]
  - BLOOD URIC ACID INCREASED [None]
  - CHILLS [None]
  - DYSPNOEA [None]
  - HAEMATOCRIT DECREASED [None]
  - HAEMOGLOBIN DECREASED [None]
  - INFUSION RELATED REACTION [None]
  - MEAN CELL HAEMOGLOBIN DECREASED [None]
  - MEAN CELL VOLUME INCREASED [None]
  - PLATELET COUNT ABNORMAL [None]
  - PULMONARY EMBOLISM [None]
  - RED BLOOD CELL COUNT ABNORMAL [None]
  - RED CELL DISTRIBUTION WIDTH ABNORMAL [None]
